FAERS Safety Report 6190785-9 (Version None)
Quarter: 2009Q2

REPORT INFORMATION
  Report Type: 
  Country: None (occurrence: None)
  Receive Date: 20090514
  Receipt Date: 20090508
  Transmission Date: 20091009
  Serious: Yes (Hospitalization)
  Sender: FDA-Public Use
  Company Number: US-ELI_LILLY_AND_COMPANY-US200905001766

PATIENT
  Sex: Female

DRUGS (10)
  1. FORTEO [Suspect]
     Dosage: 20 UG, DAILY (1/D)
     Dates: start: 20020101, end: 20040101
  2. PREMARIN [Concomitant]
  3. FOLIC ACID [Concomitant]
  4. DARVOCET [Concomitant]
  5. MULTI-VITAMIN [Concomitant]
  6. VITAMIN E /001105/ [Concomitant]
  7. CALCIUM [Concomitant]
  8. BIOTIN [Concomitant]
  9. VITAMIN B-12 [Concomitant]
  10. PROPULSID [Concomitant]

REACTIONS (3)
  - NERVE COMPRESSION [None]
  - SPINAL FUSION SURGERY [None]
  - SURGERY [None]
